FAERS Safety Report 7608545-8 (Version None)
Quarter: 2011Q3

REPORT INFORMATION
  Report Type: 
  Country: None (occurrence: None)
  Receive Date: 20110714
  Receipt Date: 20110630
  Transmission Date: 20111222
  Serious: No
  Sender: FDA-Public Use
  Company Number: PHFR2011GB02158

PATIENT
  Sex: Female

DRUGS (7)
  1. ZUCLOPENTHIXOL [Concomitant]
     Indication: SCHIZOPHRENIA
     Dosage: 50 MG/DAY
     Route: 048
  2. CLOZAPINE [Suspect]
     Indication: SCHIZOPHRENIA
     Dosage: 750 MG/DAY
     Route: 048
     Dates: start: 20090529
  3. PROMETHAZINE [Concomitant]
     Indication: SCHIZOPHRENIA
     Dosage: 50 MG/DAY
     Route: 048
  4. DEPAKOTE [Concomitant]
     Indication: SCHIZOPHRENIA
     Dosage: 2000 MG/DAY
     Route: 048
  5. ACETAMINOPHEN [Concomitant]
     Dosage: 1000 MG/DAY
     Route: 048
  6. PROCYCLIDINE HYDROCHLORIDE 2MG TAB [Concomitant]
     Indication: EXTRAPYRAMIDAL DISORDER
     Dosage: 20 MG/DAY
     Route: 048
  7. LANSOPRAZOLE [Concomitant]
     Dosage: 30 MG/DAY
     Route: 048

REACTIONS (1)
  - DIFFERENTIAL WHITE BLOOD CELL COUNT ABNORMAL [None]
